FAERS Safety Report 10409546 (Version 2)
Quarter: 2014Q3

REPORT INFORMATION
  Report Type: Spontaneous
  Country: US (occurrence: US)
  Receive Date: 20140826
  Receipt Date: 20140826
  Transmission Date: 20150326
  Serious: Yes (Hospitalization, Disabling, Other)
  Sender: FDA-Public Use
  Company Number: US-009507513-2010SP000788

PATIENT
  Sex: Female
  Weight: 77.11 kg

DRUGS (1)
  1. NUVARING [Suspect]
     Active Substance: ETHINYL ESTRADIOL\ETONOGESTREL
     Indication: CONTRACEPTION
     Dosage: UNK UNK, QM
     Route: 067
     Dates: start: 20070402, end: 20080202

REACTIONS (3)
  - Pulmonary embolism [Unknown]
  - White blood cell count increased [Recovered/Resolved]
  - Pneumonitis [Unknown]

NARRATIVE: CASE EVENT DATE: 20080224
